FAERS Safety Report 7568653-7 (Version None)
Quarter: 2011Q2

REPORT INFORMATION
  Report Type: 
  Country: None (occurrence: None)
  Receive Date: 20110623
  Receipt Date: 20110614
  Transmission Date: 20111010
  Serious: Yes (Hospitalization)
  Sender: FDA-Public Use
  Company Number: AR-JNJFOC-20090204973

PATIENT
  Sex: Female
  Weight: 73 kg

DRUGS (17)
  1. FOLIC ACID [Concomitant]
     Route: 048
     Dates: start: 20061102
  2. GOLIMUMAB [Suspect]
     Route: 058
     Dates: start: 20080926
  3. PLACEBO [Suspect]
     Indication: RHEUMATOID ARTHRITIS
     Route: 058
     Dates: start: 20080219
  4. METHOTREXATE [Concomitant]
     Route: 048
     Dates: start: 20080707
  5. GOLIMUMAB [Suspect]
     Route: 058
     Dates: start: 20080805
  6. GOLIMUMAB [Suspect]
     Route: 058
     Dates: start: 20081128
  7. GOLIMUMAB [Suspect]
     Route: 058
     Dates: start: 20081023
  8. GOLIMUMAB [Suspect]
     Route: 058
     Dates: start: 20080902
  9. GOLIMUMAB [Suspect]
     Route: 058
     Dates: start: 20080707
  10. PLACEBO [Suspect]
     Route: 058
     Dates: start: 20080318
  11. GEMFIBROZIL [Concomitant]
     Route: 048
  12. GOLIMUMAB [Suspect]
     Indication: RHEUMATOID ARTHRITIS
     Route: 058
     Dates: start: 20081218
  13. PREDNISONE [Concomitant]
     Route: 048
     Dates: start: 20080926
  14. GOLIMUMAB [Suspect]
     Route: 058
     Dates: start: 20090116
  15. FEMIANE [Concomitant]
     Route: 048
     Dates: start: 20060604
  16. PLACEBO [Suspect]
     Route: 058
     Dates: start: 20080417
  17. METHOTREXATE [Suspect]
     Indication: RHEUMATOID ARTHRITIS
     Route: 048
     Dates: start: 20080125, end: 20080704

REACTIONS (1)
  - PNEUMONIA [None]
